FAERS Safety Report 20374803 (Version 2)
Quarter: 2022Q1

REPORT INFORMATION
  Report Type: Report from Study
  Country: US (occurrence: US)
  Receive Date: 20220125
  Receipt Date: 20220225
  Transmission Date: 20220424
  Serious: Yes (Hospitalization, Other)
  Sender: FDA-Public Use
  Company Number: US-GLAXOSMITHKLINE-US2022GSK011785

PATIENT
  Sex: Male

DRUGS (2)
  1. FLUTICASONE FUROATE\UMECLIDINIUM BROMIDE\VILANTEROL TRIFENATATE [Suspect]
     Active Substance: FLUTICASONE FUROATE\UMECLIDINIUM BROMIDE\VILANTEROL TRIFENATATE
     Indication: Product used for unknown indication
     Dosage: UNK
  2. OFEV [Suspect]
     Active Substance: NINTEDANIB
     Indication: Idiopathic pulmonary fibrosis
     Dosage: 150 MG, BID EVERY 12 HOURS
     Route: 048

REACTIONS (14)
  - Gallbladder disorder [Recovered/Resolved]
  - Rheumatoid arthritis [Unknown]
  - Asthenia [Not Recovered/Not Resolved]
  - Anxiety [Unknown]
  - Cough [Unknown]
  - Dizziness [Unknown]
  - Diarrhoea [Not Recovered/Not Resolved]
  - Stomatitis [Unknown]
  - Glossodynia [Unknown]
  - Joint swelling [Unknown]
  - Peripheral swelling [Unknown]
  - Neck pain [Unknown]
  - Cervical radiculopathy [Unknown]
  - Nausea [Unknown]
